FAERS Safety Report 7506651-X (Version None)
Quarter: 2011Q2

REPORT INFORMATION
  Report Type: 
  Country: None (occurrence: None)
  Receive Date: 20110412
  Receipt Date: 20110105
  Transmission Date: 20111010
  Serious: Yes (Hospitalization)
  Sender: FDA-Public Use
  Company Number: 2011027297

PATIENT
  Sex: Male
  Weight: 28 kg

DRUGS (8)
  1. HIZENTRA [Suspect]
     Indication: IMMUNODEFICIENCY COMMON VARIABLE
     Dosage: SEE IMAGE, INTRAVENOUS
     Route: 042
     Dates: start: 20100801
  2. HIZENTRA [Suspect]
     Indication: IMMUNODEFICIENCY COMMON VARIABLE
     Dosage: SEE IMAGE, INTRAVENOUS
     Route: 042
     Dates: start: 20100801
  3. NASONEX [Concomitant]
  4. MAXAIR [Concomitant]
  5. PERIACTIN [Concomitant]
  6. ZYRTEC [Concomitant]
  7. ADVAIR HFA [Concomitant]
  8. SINGULAIR [Concomitant]

REACTIONS (7)
  - VOMITING [None]
  - PYREXIA [None]
  - HYPERAESTHESIA [None]
  - DEHYDRATION [None]
  - HEADACHE [None]
  - MIGRAINE [None]
  - MYALGIA [None]
